FAERS Safety Report 7646803-1 (Version None)
Quarter: 2011Q3

REPORT INFORMATION
  Report Type: 
  Country: None (occurrence: None)
  Receive Date: 20110801
  Receipt Date: 20110720
  Transmission Date: 20111222
  Serious: Yes (Disabling)
  Sender: FDA-Public Use
  Company Number: GB-SANOFI-AVENTIS-2011SA046755

PATIENT
  Age: 51 Year
  Sex: Male

DRUGS (2)
  1. OMEPRAZOLE [Concomitant]
  2. LEFLUNOMIDE [Suspect]
     Route: 048
     Dates: start: 20110104, end: 20110713

REACTIONS (5)
  - MUSCLE RUPTURE [None]
  - BACK PAIN [None]
  - TENDERNESS [None]
  - CONTUSION [None]
  - CHEST PAIN [None]
